FAERS Safety Report 4742752-7 (Version None)
Quarter: 2005Q3

REPORT INFORMATION
  Report Type: 
  Country: None (occurrence: None)
  Receive Date: 20050810
  Receipt Date: 20050810
  Transmission Date: 20060218
  Serious: Yes (Hospitalization, Other)
  Sender: FDA-Public Use
  Company Number: None

PATIENT
  Age: 81 Year
  Sex: Female

DRUGS (1)
  1. NEURONTIN [Suspect]
     Indication: NEUROPATHY
     Dosage: 100MG   TID   ORAL
     Route: 048
     Dates: start: 20040701, end: 20050301

REACTIONS (4)
  - CIRCADIAN RHYTHM SLEEP DISORDER [None]
  - CONFUSIONAL STATE [None]
  - CYSTITIS [None]
  - HALLUCINATIONS, MIXED [None]
